FAERS Safety Report 19511105 (Version 1)
Quarter: 2021Q3

REPORT INFORMATION
  Report Type: Spontaneous
  Country: US (occurrence: US)
  Receive Date: 20210709
  Receipt Date: 20210709
  Transmission Date: 20211014
  Serious: No
  Sender: FDA-Public Use
  Company Number: US-ORGANON-O2106USA002454

PATIENT
  Sex: Female

DRUGS (1)
  1. NEXPLANON [Suspect]
     Active Substance: ETONOGESTREL
     Indication: CONTRACEPTION
     Dosage: 68 MILLIGRAM, ONCE EVERY 3 YEARS
     Route: 059
     Dates: start: 20200326, end: 20210610

REACTIONS (2)
  - Implant site pain [Unknown]
  - Heavy menstrual bleeding [Unknown]
